FAERS Safety Report 19612364 (Version 1)
Quarter: 2021Q3

REPORT INFORMATION
  Report Type: Report from Study
  Country: FR (occurrence: FR)
  Receive Date: 20210727
  Receipt Date: 20210727
  Transmission Date: 20211014
  Serious: Yes (Other)
  Sender: FDA-Public Use
  Company Number: FR-TEVA-2021-FR-1935838

PATIENT
  Age: 32 Year
  Sex: Female

DRUGS (3)
  1. AMOXICILLIN. [Suspect]
     Active Substance: AMOXICILLIN
     Indication: SKIN TEST
     Dosage: 20MG/ML DURING SKIN TEST
     Route: 065
  2. PENICILLOYL POLYLYSINE [Suspect]
     Active Substance: PENICILLOYL-POLYLYSINE
     Indication: SKIN TEST
     Dosage: 20MG/ML DURING SKIN TEST
     Route: 065
  3. CEFATRIZINE [Suspect]
     Active Substance: CEFATRIZINE
     Indication: PRODUCT USED FOR UNKNOWN INDICATION
     Route: 065

REACTIONS (4)
  - Hypotension [Unknown]
  - Circulatory collapse [Unknown]
  - Loss of consciousness [Unknown]
  - Anaphylactic reaction [Unknown]
